FAERS Safety Report 8319520-2 (Version None)
Quarter: 2012Q2

REPORT INFORMATION
  Report Type: 
  Country: None (occurrence: None)
  Receive Date: 20120427
  Receipt Date: 20120416
  Transmission Date: 20120825
  Serious: Yes (Other)
  Sender: FDA-Public Use
  Company Number: US-JNJFOC-20120313462

PATIENT
  Sex: Female

DRUGS (14)
  1. REMICADE [Suspect]
     Route: 042
     Dates: start: 20110315
  2. REMICADE [Suspect]
     Route: 042
     Dates: start: 20110831
  3. REMICADE [Suspect]
     Route: 042
     Dates: start: 20110118
  4. AZATHIOPRINE [Suspect]
     Indication: PRODUCT USED FOR UNKNOWN INDICATION
     Dosage: STARTED 2.5 YEARS AGO
     Route: 065
  5. VITAMIN AND MINERAL PRENATAL SUPPLEMENT W/ FOLIC ACID CAP [Concomitant]
     Route: 065
  6. REMICADE [Suspect]
     Route: 042
     Dates: start: 20070427
  7. REMICADE [Suspect]
     Route: 042
     Dates: start: 20111024
  8. REMICADE [Suspect]
     Route: 042
     Dates: start: 20110708
  9. REMICADE [Suspect]
     Route: 042
     Dates: start: 20080912
  10. REMICADE [Suspect]
     Route: 042
     Dates: start: 20070511
  11. MESALAMINE [Suspect]
     Indication: PRODUCT USED FOR UNKNOWN INDICATION
     Route: 065
  12. REMICADE [Suspect]
     Indication: CROHN'S DISEASE
     Route: 042
     Dates: start: 20070608
  13. REMICADE [Suspect]
     Route: 042
     Dates: start: 20110512
  14. REMICADE [Suspect]
     Route: 042
     Dates: start: 20111207

REACTIONS (4)
  - DIARRHOEA [None]
  - MATERNAL EXPOSURE DURING PREGNANCY [None]
  - PRE-ECLAMPSIA [None]
  - HEPATITIS ACUTE [None]
